FAERS Safety Report 19071882 (Version 1)
Quarter: 2021Q1

REPORT INFORMATION
  Report Type: Other
  Country: CA (occurrence: CA)
  Receive Date: 20210330
  Receipt Date: 20210330
  Transmission Date: 20210420
  Serious: Yes (Other)
  Sender: FDA-Public Use
  Company Number: CA-APOTEX-2021AP007233

PATIENT
  Sex: Female

DRUGS (2)
  1. MYCOPHENOLATE MOFETIL. [Suspect]
     Active Substance: MYCOPHENOLATE MOFETIL
     Indication: PRODUCT USED FOR UNKNOWN INDICATION
     Dosage: 500 MILLIGRAM, QD
     Route: 065
  2. ORENCIA [Concomitant]
     Active Substance: ABATACEPT
     Indication: POLYARTHRITIS
     Dosage: UNK
     Route: 042

REACTIONS (2)
  - Polyarthritis [Unknown]
  - Treatment failure [Unknown]
